FAERS Safety Report 6610239-2 (Version None)
Quarter: 2010Q1

REPORT INFORMATION
  Report Type: 
  Country: None (occurrence: None)
  Receive Date: 20100216
  Receipt Date: 20090819
  Transmission Date: 20100710
  Serious: Yes (Other)
  Sender: FDA-Public Use
  Company Number: MC200900336

PATIENT

DRUGS (4)
  1. ANGIOMAX [Suspect]
     Indication: PERCUTANEOUS CORONARY INTERVENTION
     Dosage: 0.75 MG/KG, BOLUS, INTRAVENOUS : 1.75 MG/KG, INTRAVENOUS
     Route: 040
     Dates: start: 20090730, end: 20090730
  2. ANGIOMAX [Suspect]
     Indication: PERCUTANEOUS CORONARY INTERVENTION
     Dosage: 0.75 MG/KG, BOLUS, INTRAVENOUS : 1.75 MG/KG, INTRAVENOUS
     Route: 040
     Dates: start: 20090730, end: 20090730
  3. HEPARIN [Concomitant]
  4. INTEGRILIN [Concomitant]

REACTIONS (3)
  - CORONARY ARTERY THROMBOSIS [None]
  - DRUG ADMINISTRATION ERROR [None]
  - REPERFUSION INJURY [None]
